FAERS Safety Report 5125751-5 (Version None)
Quarter: 2006Q4

REPORT INFORMATION
  Report Type: 
  Country: None (occurrence: None)
  Receive Date: 20061010
  Receipt Date: 20061010
  Transmission Date: 20070319
  Serious: Yes (Hospitalization)
  Sender: FDA-Public Use
  Company Number: None

PATIENT
  Sex: Female
  Weight: 71.2147 kg

DRUGS (4)
  1. MIDAZOLAM HCL [Suspect]
     Indication: PREOPERATIVE CARE
     Dosage: 7MG ONCE IV
     Route: 042
     Dates: start: 20060901, end: 20060901
  2. MIDAZOLAM HCL [Suspect]
     Indication: SEDATIVE THERAPY
     Dosage: 7MG ONCE IV
     Route: 042
     Dates: start: 20060901, end: 20060901
  3. FENTANYL [Concomitant]
  4. MIDAZOLAM [Concomitant]

REACTIONS (4)
  - AMNESIA [None]
  - CONFUSIONAL STATE [None]
  - MIGRAINE [None]
  - POST PROCEDURAL COMPLICATION [None]
